FAERS Safety Report 22249127 (Version 2)
Quarter: 2023Q2

REPORT INFORMATION
  Report Type: Spontaneous
  Country: JP (occurrence: JP)
  Receive Date: 20230425
  Receipt Date: 20230516
  Transmission Date: 20230721
  Serious: Yes (Other)
  Sender: FDA-Public Use
  Company Number: JP-002147023-NVSJ2023JP006835

PATIENT
  Age: 8 Year

DRUGS (2)
  1. VALSARTAN [Suspect]
     Active Substance: VALSARTAN
     Indication: IgA nephropathy
     Dosage: UNK
     Route: 065
  2. MIZORIBINE [Concomitant]
     Active Substance: MIZORIBINE
     Indication: IgA nephropathy
     Dosage: UNK
     Route: 065

REACTIONS (3)
  - IgA nephropathy [Unknown]
  - Condition aggravated [Unknown]
  - Off label use [Unknown]
